FAERS Safety Report 10547125 (Version 1)
Quarter: 2014Q4

REPORT INFORMATION
  Report Type: Spontaneous
  Country: US (occurrence: US)
  Receive Date: 20141027
  Receipt Date: 20141027
  Transmission Date: 20150529
  Serious: No
  Sender: FDA-Public Use
  Company Number: US-ABBVIE-14P-163-1283733-00

PATIENT
  Sex: Female

DRUGS (1)
  1. LUPRON DEPOT [Suspect]
     Active Substance: LEUPROLIDE ACETATE
     Indication: ENDOMETRIOSIS
     Dates: start: 2005, end: 2005

REACTIONS (6)
  - Memory impairment [Not Recovered/Not Resolved]
  - Hot flush [Recovered/Resolved]
  - Road traffic accident [Recovered/Resolved with Sequelae]
  - Endometriosis [Not Recovered/Not Resolved]
  - Injection site pain [Recovered/Resolved]
  - Pelvic pain [Not Recovered/Not Resolved]

NARRATIVE: CASE EVENT DATE: 2005
